FAERS Safety Report 6878358-3 (Version None)
Quarter: 2010Q3

REPORT INFORMATION
  Report Type: 
  Country: None (occurrence: None)
  Receive Date: 20100728
  Receipt Date: 20100719
  Transmission Date: 20110219
  Serious: Yes (Other)
  Sender: FDA-Public Use
  Company Number: FR-PFIZER INC-2010089518

PATIENT
  Age: 44 Year
  Sex: Female

DRUGS (7)
  1. CAMPTOSAR [Suspect]
     Dosage: UNK
     Route: 042
     Dates: start: 20100615, end: 20100615
  2. ONDANSETRON [Concomitant]
  3. SOLU-MEDROL [Concomitant]
  4. OXALIPLATIN [Concomitant]
  5. ATROPINE [Concomitant]
  6. CALCIUM LEVOFOLINATE [Concomitant]
  7. FLUOROURACIL [Concomitant]

REACTIONS (2)
  - PARAESTHESIA [None]
  - SKIN WARM [None]
